FAERS Safety Report 9121157 (Version 1)
Quarter: 2013Q1

REPORT INFORMATION
  Report Type: Spontaneous
  Country: FR (occurrence: FR)
  Receive Date: 20130225
  Receipt Date: 20130225
  Transmission Date: 20140127
  Serious: Yes (Congenital Anomaly, Other)
  Sender: FDA-Public Use
  Company Number: FR-009507513-1302FRA011213

PATIENT
  Sex: 0

DRUGS (2)
  1. NUVARING [Suspect]
     Indication: CONTRACEPTION
     Dosage: UNK
     Route: 064
     Dates: start: 20120507
  2. FOLIC ACID [Concomitant]
     Route: 064

REACTIONS (4)
  - Cerebral ventricle dilatation [Unknown]
  - Spina bifida [Unknown]
  - Meningomyelocele [Unknown]
  - Foetal exposure during pregnancy [Unknown]
